FAERS Safety Report 11290232 (Version 1)
Quarter: 2015Q3

REPORT INFORMATION
  Report Type: Spontaneous
  Country: CH (occurrence: CH)
  Receive Date: 20150721
  Receipt Date: 20150721
  Transmission Date: 20151125
  Serious: Yes (Other)
  Sender: FDA-Public Use
  Company Number: CH-ASTRAZENECA-2015SE69042

PATIENT

DRUGS (6)
  1. FLUCTINE [Suspect]
     Active Substance: FLUOXETINE HYDROCHLORIDE
     Indication: DEPRESSION
     Route: 065
     Dates: end: 20140825
  2. SEROQUEL [Suspect]
     Active Substance: QUETIAPINE FUMARATE
     Indication: DEPRESSION
     Route: 048
     Dates: end: 20140825
  3. STILNOX [Suspect]
     Active Substance: ZOLPIDEM TARTRATE
     Dosage: EVERY DAY
     Route: 065
     Dates: end: 20140825
  4. TRANXILIUM [Suspect]
     Active Substance: CLORAZEPATE DIPOTASSIUM
     Indication: DEPRESSION
     Route: 065
     Dates: end: 20140825
  5. LYRICA [Suspect]
     Active Substance: PREGABALIN
     Indication: INTERVERTEBRAL DISC PROTRUSION
     Route: 065
     Dates: end: 20140825
  6. OLFEN PATCH PFLASTER [Suspect]
     Active Substance: DICLOFENAC SODIUM
     Indication: INTERVERTEBRAL DISC PROTRUSION
     Route: 065
     Dates: end: 20140825

REACTIONS (2)
  - Exposure during pregnancy [Recovered/Resolved]
  - Abortion [Recovered/Resolved]

NARRATIVE: CASE EVENT DATE: 2014
